FAERS Safety Report 16508099 (Version 3)
Quarter: 2019Q3

REPORT INFORMATION
  Report Type: Spontaneous
  Country: JP (occurrence: JP)
  Receive Date: 20190701
  Receipt Date: 20190725
  Transmission Date: 20191004
  Serious: Yes (Other)
  Sender: FDA-Public Use
  Company Number: JP-SHIRE-JP201920617

PATIENT
  Age: 39 Year
  Sex: Male

DRUGS (2)
  1. GAMMAGARD S/D [Suspect]
     Active Substance: HUMAN IMMUNOGLOBULIN G
     Indication: GUILLAIN-BARRE SYNDROME
     Dosage: 2 GRAM PER KILOGRAM
     Route: 042
  2. VITAMIN B12 + FOLIC ACID [Concomitant]
     Indication: GUILLAIN-BARRE SYNDROME

REACTIONS (1)
  - Colitis ulcerative [Recovering/Resolving]
